FAERS Safety Report 4837326-3 (Version None)
Quarter: 2005Q4

REPORT INFORMATION
  Report Type: 
  Country: None (occurrence: None)
  Receive Date: 20051122
  Receipt Date: 20051109
  Transmission Date: 20060501
  Serious: Yes (Death, Other)
  Sender: FDA-Public Use
  Company Number: 2005-02237

PATIENT
  Age: 53 Year
  Sex: Female
  Weight: 43 kg

DRUGS (9)
  1. VELCADE [Suspect]
     Indication: MULTIPLE MYELOMA
     Dosage: 1.70 MG/M2, INTRAVENOUS
     Route: 042
     Dates: start: 20040419, end: 20040419
  2. DEXAMETHASONE [Concomitant]
  3. THALIDOMIDE [Concomitant]
  4. FAMOTIDINE [Concomitant]
  5. ALLOPURINOL [Concomitant]
  6. SODIUM BICARBONATE IN PLASTIC CONTAINER [Concomitant]
  7. LASIX [Concomitant]
  8. ALENDRONATE SODIUM [Concomitant]
  9. AREDIA [Concomitant]

REACTIONS (13)
  - ACUTE PULMONARY OEDEMA [None]
  - ACUTE RESPIRATORY FAILURE [None]
  - ATRIAL FLUTTER [None]
  - BUNDLE BRANCH BLOCK RIGHT [None]
  - CARDIAC ARREST [None]
  - CARDIAC FAILURE CONGESTIVE [None]
  - ELECTROCARDIOGRAM ST SEGMENT DEPRESSION [None]
  - LACTIC ACIDOSIS [None]
  - PULMONARY CONGESTION [None]
  - PULMONARY VALVE STENOSIS [None]
  - SINUS TACHYCARDIA [None]
  - THERAPY NON-RESPONDER [None]
  - TUMOUR LYSIS SYNDROME [None]
